FAERS Safety Report 5872467-3 (Version None)
Quarter: 2008Q3

REPORT INFORMATION
  Report Type: 
  Country: None (occurrence: None)
  Receive Date: 20080905
  Receipt Date: 20080829
  Transmission Date: 20090109
  Serious: Yes (Other)
  Sender: FDA-Public Use
  Company Number: PHHY2008AR19517

PATIENT
  Sex: Female

DRUGS (1)
  1. EXFORGE [Suspect]
     Indication: HYPERTENSION
     Dosage: 5/160 MG, QD

REACTIONS (4)
  - DRUG INTOLERANCE [None]
  - GAIT DISTURBANCE [None]
  - PAIN [None]
  - TENDONITIS [None]
